FAERS Safety Report 4733220-7 (Version None)
Quarter: 2005Q3

REPORT INFORMATION
  Report Type: 
  Country: None (occurrence: None)
  Receive Date: 20050801
  Receipt Date: 20050801
  Transmission Date: 20060218
  Serious: Yes (Hospitalization)
  Sender: FDA-Public Use
  Company Number: None

PATIENT
  Age: 84 Year
  Sex: Male

DRUGS (3)
  1. OXYBUTYNIN [Suspect]
     Indication: BLADDER SPASM
     Dosage: 5 MG TID
     Dates: start: 20050406
  2. BISACODYL [Concomitant]
  3. METOCLOPRAMIDE [Concomitant]

REACTIONS (1)
  - ORTHOSTATIC HYPOTENSION [None]
